FAERS Safety Report 14660831 (Version 2)
Quarter: 2020Q3

REPORT INFORMATION
  Report Type: Report from Study
  Country: ES (occurrence: ES)
  Receive Date: 20180320
  Receipt Date: 20180409
  Transmission Date: 20201105
  Serious: Yes (Death, Hospitalization)
  Sender: FDA-Public Use
  Company Number: ES-ASTRAZENECA-2018SE32400

PATIENT
  Age: 24154 Day
  Sex: Male
  Weight: 60 kg

DRUGS (5)
  1. DURVALUMAB. [Suspect]
     Active Substance: DURVALUMAB
     Indication: NEUROENDOCRINE TUMOUR
     Route: 042
  2. DURVALUMAB. [Suspect]
     Active Substance: DURVALUMAB
     Indication: NEUROENDOCRINE TUMOUR
     Route: 042
     Dates: start: 20170912
  3. DURVALUMAB. [Suspect]
     Active Substance: DURVALUMAB
     Indication: NEUROENDOCRINE TUMOUR
     Route: 042
     Dates: start: 20171227
  4. TREMELIMUMAB. [Suspect]
     Active Substance: TREMELIMUMAB
     Indication: NEUROENDOCRINE TUMOUR
     Route: 042
     Dates: start: 20171227
  5. TREMELIMUMAB. [Suspect]
     Active Substance: TREMELIMUMAB
     Indication: NEUROENDOCRINE TUMOUR
     Route: 042
     Dates: start: 20170912

REACTIONS (3)
  - Abdominal pain [Recovered/Resolved]
  - Ascites [Recovered/Resolved]
  - Vomiting [Recovered/Resolved]

NARRATIVE: CASE EVENT DATE: 20180312
